FAERS Safety Report 7191511-7 (Version None)
Quarter: 2010Q4

REPORT INFORMATION
  Report Type: 
  Country: None (occurrence: None)
  Receive Date: 20101223
  Receipt Date: 20100817
  Transmission Date: 20110411
  Serious: No
  Sender: FDA-Public Use
  Company Number: US-AMGEN-KDL431949

PATIENT

DRUGS (1)
  1. ENBREL [Suspect]
     Indication: RHEUMATOID ARTHRITIS
     Dosage: 50 MG, QWK
     Route: 058
     Dates: start: 20100714

REACTIONS (7)
  - ASTHENIA [None]
  - BACK PAIN [None]
  - DIZZINESS [None]
  - DRY MOUTH [None]
  - DRY THROAT [None]
  - INCREASED UPPER AIRWAY SECRETION [None]
  - NAUSEA [None]
